FAERS Safety Report 14573022 (Version 2)
Quarter: 2018Q3

REPORT INFORMATION
  Report Type: Report from Study
  Country: US (occurrence: US)
  Receive Date: 20180226
  Receipt Date: 20180907
  Transmission Date: 20181010
  Serious: No
  Sender: FDA-Public Use
  Company Number: PHEH2018US007355

PATIENT
  Age: 32 Year
  Sex: Male

DRUGS (1)
  1. COSENTYX [Suspect]
     Active Substance: SECUKINUMAB
     Indication: PSORIASIS
     Dosage: 300 MG, QMO
     Route: 058
     Dates: start: 20171011

REACTIONS (6)
  - Nervousness [Unknown]
  - Hypoaesthesia [Unknown]
  - Drug effect decreased [Unknown]
  - Dizziness [Unknown]
  - Headache [Unknown]
  - Skin lesion [Unknown]

NARRATIVE: CASE EVENT DATE: 20180605
